FAERS Safety Report 5003069-9 (Version None)
Quarter: 2006Q2

REPORT INFORMATION
  Report Type: 
  Country: None (occurrence: None)
  Receive Date: 20060516
  Receipt Date: 20060508
  Transmission Date: 20061013
  Serious: Yes (Hospitalization)
  Sender: FDA-Public Use
  Company Number: PHBS2006IT06846

PATIENT
  Age: 57 Year
  Sex: Male
  Weight: 95 kg

DRUGS (5)
  1. TOLEP [Suspect]
     Route: 048
  2. TOLEP [Suspect]
     Dosage: 70 TABLETS OF 600 MG
     Route: 048
  3. CIBADREX [Suspect]
     Route: 048
  4. CIBADREX [Suspect]
     Dosage: UNDEFINED NUMBER OF TABLETS
     Route: 048
  5. ALCOHOL [Suspect]
     Dosage: SOME GLASSES OF WINE
     Route: 048

REACTIONS (10)
  - BLOOD ALCOHOL INCREASED [None]
  - BLOOD PRESSURE INCREASED [None]
  - CONFUSIONAL STATE [None]
  - HAEMODIALYSIS [None]
  - HEART RATE DECREASED [None]
  - HYPOKALAEMIA [None]
  - INTENTIONAL OVERDOSE [None]
  - INTUBATION [None]
  - LOSS OF CONSCIOUSNESS [None]
  - STUPOR [None]
